FAERS Safety Report 25614165 (Version 5)
Quarter: 2025Q3

REPORT INFORMATION
  Report Type: Report from Study
  Country: US (occurrence: US)
  Receive Date: 20250728
  Receipt Date: 20250829
  Transmission Date: 20251020
  Serious: Yes (Other)
  Sender: MALLINCKRODT
  Company Number: US-MALLINCKRODT-MNK202504483

PATIENT
  Age: 7 Month
  Sex: Male
  Weight: 9.5 kg

DRUGS (1)
  1. CORTICOTROPIN [Suspect]
     Active Substance: CORTICOTROPIN
     Indication: Infantile spasms
     Route: 030
     Dates: start: 20250718, end: 20250816

REACTIONS (8)
  - Infantile spasms [Unknown]
  - Disease recurrence [Unknown]
  - Tonic convulsion [Unknown]
  - Seizure [Unknown]
  - Flatulence [Not Recovered/Not Resolved]
  - Drooling [Unknown]
  - Constipation [Not Recovered/Not Resolved]
  - Irritability [Not Recovered/Not Resolved]

NARRATIVE: CASE EVENT DATE: 20250101
